FAERS Safety Report 8839537 (Version 2)
Quarter: 2013Q1

REPORT INFORMATION
  Report Type: Spontaneous
  Country: US (occurrence: US)
  Receive Date: 20121015
  Receipt Date: 20130215
  Transmission Date: 20140127
  Serious: Yes (Hospitalization)
  Sender: FDA-Public Use
  Company Number: PHEH2012US019945

PATIENT
  Sex: Male

DRUGS (12)
  1. SANDOSTATIN LAR DEPOT [Suspect]
     Dosage: 10 MG, ONCE PER MONTH
  2. PRILOSEC [Concomitant]
     Dosage: 40 MG, DAILY
  3. FERROUS SULFATE [Concomitant]
     Dosage: 50 G, TID
  4. MAG-OX [Concomitant]
     Dosage: 2 DF, TID
  5. PAROXETINE [Concomitant]
     Dosage: 20 MG, QD
  6. FLUDROCORTISONE [Concomitant]
     Dosage: 0.1 MG, QD
  7. ALLOPURINOL [Concomitant]
     Dosage: 300 MG,HALF PER DAY
  8. CALCITRIOL [Concomitant]
     Dosage: 3 X PER WEEK
  9. VITAMIN D [Concomitant]
  10. MULTIVITAMINS [Concomitant]
     Dosage: 1 X PER DAY
  11. MIDODRINE [Concomitant]
     Dosage: 5  MG DAILY
  12. TRAZODONE [Concomitant]
     Dosage: 50 MG, DAILY

REACTIONS (9)
  - Nutritional condition abnormal [Unknown]
  - Volume blood decreased [Unknown]
  - Diarrhoea [Unknown]
  - Pain [Unknown]
  - Blood calcium increased [Unknown]
  - Blood potassium increased [Unknown]
  - Blood creatinine increased [Unknown]
  - Alanine aminotransferase increased [Unknown]
  - Drug ineffective [Unknown]
